FAERS Safety Report 7463037-4 (Version None)
Quarter: 2011Q1

REPORT INFORMATION
  Report Type: 
  Country: None (occurrence: None)
  Receive Date: 20110302
  Receipt Date: 20101222
  Transmission Date: 20110831
  Serious: Yes (Other)
  Sender: FDA-Public Use
  Company Number: 163-21880-10082211

PATIENT
  Age: 66 Year
  Sex: Male
  Weight: 79.3795 kg

DRUGS (2)
  1. REVLIMID [Suspect]
     Indication: MYELODYSPLASTIC SYNDROME
     Dosage: 15 MG, EVERY DAY FOR 21 DAYS, THEN 1 WEEK OFF, PO, 10 MG, EVERY DAY FOR 21 DAYS,THEN 1 WEEKS OFF, PO
     Route: 048
     Dates: start: 20101029
  2. REVLIMID [Suspect]
     Indication: MYELODYSPLASTIC SYNDROME
     Dosage: 15 MG, EVERY DAY FOR 21 DAYS, THEN 1 WEEK OFF, PO, 10 MG, EVERY DAY FOR 21 DAYS,THEN 1 WEEKS OFF, PO
     Route: 048
     Dates: start: 20100801

REACTIONS (9)
  - LIP SWELLING [None]
  - STOMATITIS [None]
  - FRACTURE [None]
  - OEDEMA PERIPHERAL [None]
  - DIARRHOEA [None]
  - RASH PRURITIC [None]
  - PAINFUL DEFAECATION [None]
  - FALL [None]
  - THROMBOSIS [None]
